FAERS Safety Report 5602183-4 (Version None)
Quarter: 2008Q1

REPORT INFORMATION
  Report Type: 
  Country: None (occurrence: None)
  Receive Date: 20080125
  Receipt Date: 20080115
  Transmission Date: 20080703
  Serious: Yes (Other)
  Sender: FDA-Public Use
  Company Number: US-ASTRAZENECA-2006UW08037

PATIENT
  Age: 37 Year
  Sex: Female
  Weight: 109.1 kg

DRUGS (2)
  1. SEROQUEL [Suspect]
     Indication: DEPRESSION
     Dosage: 200 MG TO 300 MG
     Route: 048
     Dates: start: 20031101
  2. SEROQUEL [Suspect]
     Indication: SCHIZOPHRENIA
     Dosage: 200 MG TO 300 MG
     Route: 048
     Dates: start: 20031101

REACTIONS (3)
  - DIABETES MELLITUS [None]
  - HIV TEST POSITIVE [None]
  - OBESITY [None]
